FAERS Safety Report 5678932-6 (Version None)
Quarter: 2008Q1

REPORT INFORMATION
  Report Type: 
  Country: None (occurrence: None)
  Receive Date: 20080325
  Receipt Date: 20080311
  Transmission Date: 20080703
  Serious: Yes (Hospitalization)
  Sender: FDA-Public Use
  Company Number: US-AVENTIS-200718324US

PATIENT
  Sex: Female

DRUGS (2)
  1. KETEK [Suspect]
     Indication: PNEUMONIA
     Dosage: DOSE: UNK
     Dates: start: 20061219, end: 20061222
  2. KETEK [Suspect]
     Dosage: DOSE: UNK
     Dates: start: 20070301, end: 20070301

REACTIONS (2)
  - BLOOD DISORDER [None]
  - MULTI-ORGAN FAILURE [None]
